FAERS Safety Report 8720383 (Version 3)
Quarter: 2012Q4

REPORT INFORMATION
  Report Type: 
  Country: JP (occurrence: JP)
  Receive Date: 20120813
  Receipt Date: 20121212
  Transmission Date: 20130627
  Serious: Yes (Death, Life-Threatening)
  Sender: FDA-Public Use
  Company Number: JP-ROCHE-1077858

PATIENT
  Age: 50 Year
  Sex: Female
  Weight: 48 kg

DRUGS (15)
  1. XELODA [Suspect]
     Indication: RECTAL CANCER METASTATIC
     Dosage: 2 weeks administration followed by 1 week rest
     Route: 048
     Dates: start: 20120601, end: 20120606
  2. AVASTIN [Suspect]
     Indication: RECTAL CANCER METASTATIC
     Route: 041
     Dates: start: 20120601, end: 20120601
  3. AVASTIN [Suspect]
     Route: 041
     Dates: start: 20111227, end: 20120421
  4. AVASTIN [Suspect]
     Route: 041
     Dates: start: 20120509, end: 20120509
  5. ELPLAT [Suspect]
     Indication: RECTAL CANCER METASTATIC
     Route: 041
     Dates: start: 20120601, end: 20120601
  6. BIO-THREE [Concomitant]
     Indication: DISBACTERIOSIS
     Route: 048
     Dates: start: 20120530, end: 20120617
  7. DECADRON [Concomitant]
     Route: 041
     Dates: start: 20120601, end: 20120601
  8. DECADRON [Concomitant]
     Route: 048
     Dates: start: 20120601, end: 20120603
  9. ALDACTONE A [Concomitant]
     Indication: MALIGNANT ASCITES
     Route: 048
     Dates: start: 20120602, end: 20120609
  10. NOVAMIN [Concomitant]
  11. MAGMITT [Concomitant]
  12. MUCOSTA [Concomitant]
  13. LOXONIN [Concomitant]
  14. LASIX [Concomitant]
  15. OXYCONTIN [Concomitant]

REACTIONS (7)
  - Renal impairment [Not Recovered/Not Resolved]
  - Disease progression [Fatal]
  - Nausea [Unknown]
  - Vomiting [Unknown]
  - Constipation [Unknown]
  - Gastritis [Unknown]
  - Pain [Unknown]
